FAERS Safety Report 22187540 (Version 3)
Quarter: 2023Q2

REPORT INFORMATION
  Report Type: Report from Study
  Country: US (occurrence: US)
  Receive Date: 20230407
  Receipt Date: 20230413
  Transmission Date: 20230722
  Serious: No
  Sender: FDA-Public Use
  Company Number: US-002147023-NVSC2023US079676

PATIENT
  Sex: Female

DRUGS (2)
  1. PREDNISONE [Suspect]
     Active Substance: PREDNISONE
     Indication: Systemic lupus erythematosus
     Dosage: UNK
     Route: 065
  2. PREDNISONE [Suspect]
     Active Substance: PREDNISONE
     Indication: Lupus nephritis

REACTIONS (17)
  - Product dose omission issue [Unknown]
  - Rash [Unknown]
  - Erythema nodosum [Unknown]
  - Skin striae [Unknown]
  - Fatigue [Unknown]
  - Renal pain [Unknown]
  - Joint swelling [Unknown]
  - Blister [Unknown]
  - Pain [Unknown]
  - Neuralgia [Unknown]
  - Abdominal pain upper [Unknown]
  - Back pain [Unknown]
  - Mental fatigue [Unknown]
  - Abdominal distension [Unknown]
  - Sleep disorder [Unknown]
  - Drug ineffective [Unknown]
  - Swelling face [Unknown]
